FAERS Safety Report 20186209 (Version 1)
Quarter: 2021Q4

REPORT INFORMATION
  Report Type: Spontaneous
  Country: US (occurrence: US)
  Receive Date: 20211215
  Receipt Date: 20211215
  Transmission Date: 20220303
  Serious: Yes (Hospitalization)
  Sender: FDA-Public Use
  Company Number: US-SUN PHARMACEUTICAL INDUSTRIES LTD-2021R1-320589

PATIENT
  Age: 54 Year
  Sex: Male

DRUGS (2)
  1. OCTREOTIDE [Suspect]
     Active Substance: OCTREOTIDE
     Indication: Vipoma
     Dosage: UNK, EXTENDED RELEASE
     Route: 030
  2. OCTREOTIDE [Suspect]
     Active Substance: OCTREOTIDE
     Indication: Vipoma
     Dosage: UNK, SHORT-ACTING
     Route: 065

REACTIONS (1)
  - Therapy partial responder [Unknown]
